FAERS Safety Report 8058311-7 (Version None)
Quarter: 2012Q1

REPORT INFORMATION
  Report Type: 
  Country: None (occurrence: None)
  Receive Date: 20120120
  Receipt Date: 20120118
  Transmission Date: 20120608
  Serious: No
  Sender: FDA-Public Use
  Company Number: US-B.I. PHARMACEUTICALS,INC./RIDGEFIELD-2012-BP-00048BP

PATIENT
  Age: 69 Year
  Sex: Male

DRUGS (6)
  1. LEVOTHYROXINE SODIUM [Concomitant]
  2. LISINOPRIL [Concomitant]
  3. ACTOS [Concomitant]
  4. LOVAZA [Concomitant]
  5. PRADAXA [Suspect]
     Indication: ATRIAL FIBRILLATION
     Dosage: 300 MG
     Route: 048
     Dates: start: 20100101
  6. FUROSEMIDE [Concomitant]

REACTIONS (2)
  - TONGUE HAEMORRHAGE [None]
  - TONGUE BITING [None]
